FAERS Safety Report 6582979-5 (Version None)
Quarter: 2010Q1

REPORT INFORMATION
  Report Type: 
  Country: None (occurrence: None)
  Receive Date: 20100212
  Receipt Date: 20100212
  Transmission Date: 20100710
  Serious: Yes (Hospitalization)
  Sender: FDA-Public Use
  Company Number: None

PATIENT

DRUGS (2)
  1. CLONAZEPAM [Suspect]
     Indication: ANXIETY
     Dosage: 1 MG HS PO
     Route: 048
     Dates: start: 20100129, end: 20100204
  2. DIVALPROEX SODIUM [Suspect]
     Indication: BIPOLAR DISORDER
     Dosage: 500MG BID PO
     Route: 048
     Dates: start: 20100129, end: 20100204

REACTIONS (2)
  - FALL [None]
  - GAIT DISTURBANCE [None]
